FAERS Safety Report 11277799 (Version 3)
Quarter: 2015Q3

REPORT INFORMATION
  Report Type: Report from Study
  Country: US (occurrence: US)
  Receive Date: 20150716
  Receipt Date: 20150818
  Transmission Date: 20151125
  Serious: Yes (Other)
  Sender: FDA-Public Use
  Company Number: US-GILEAD-2015-0158291

PATIENT
  Age: 74 Year
  Sex: Female

DRUGS (5)
  1. AMBRISENTAN [Suspect]
     Active Substance: AMBRISENTAN
     Indication: PULMONARY ARTERIAL HYPERTENSION
     Dosage: 5 MG, QD
     Route: 065
     Dates: start: 201504
  2. SOTALOL. [Concomitant]
     Active Substance: SOTALOL
     Dosage: UNK
     Dates: start: 201505
  3. AMBRISENTAN [Suspect]
     Active Substance: AMBRISENTAN
     Dosage: 10 MG, QD
     Route: 065
  4. DIOVAN [Concomitant]
     Active Substance: VALSARTAN
  5. ADCIRCA [Concomitant]
     Active Substance: TADALAFIL

REACTIONS (7)
  - Hypotension [Unknown]
  - Nasal congestion [Unknown]
  - Oxygen saturation decreased [Unknown]
  - Walking distance test abnormal [Unknown]
  - Dyspnoea [Unknown]
  - Pulmonary arterial pressure abnormal [Unknown]
  - Productive cough [Unknown]

NARRATIVE: CASE EVENT DATE: 201504
